FAERS Safety Report 5912038-3 (Version None)
Quarter: 2008Q4

REPORT INFORMATION
  Report Type: 
  Country: None (occurrence: None)
  Receive Date: 20081008
  Receipt Date: 20080929
  Transmission Date: 20090506
  Serious: Yes (Other)
  Sender: FDA-Public Use
  Company Number: US-AMGEN-US310258

PATIENT
  Sex: Male

DRUGS (11)
  1. ENBREL [Suspect]
     Indication: RHEUMATOID ARTHRITIS
     Route: 058
     Dates: start: 20021020, end: 20050505
  2. KINERET [Suspect]
     Indication: RHEUMATOID ARTHRITIS
     Route: 065
     Dates: start: 20020912, end: 20021020
  3. PLAQUENIL [Suspect]
     Route: 048
     Dates: start: 20011031, end: 20031118
  4. HUMIRA [Suspect]
     Route: 058
     Dates: start: 20050505, end: 20061008
  5. CELEBREX [Concomitant]
     Route: 065
     Dates: start: 20011031, end: 20021001
  6. VIOXX [Concomitant]
     Route: 065
     Dates: start: 20021001, end: 20030913
  7. PREDNISONE [Concomitant]
     Route: 065
     Dates: start: 20020518
  8. BEXTRA [Concomitant]
     Route: 065
     Dates: start: 20030915, end: 20050202
  9. MOBIC [Concomitant]
     Route: 065
     Dates: start: 20050207
  10. METHOTREXATE SODIUM [Concomitant]
     Route: 065
     Dates: start: 20050822
  11. RITUXAN [Concomitant]
     Route: 065
     Dates: start: 20061008

REACTIONS (1)
  - THROMBOCYTOPENIA [None]
